FAERS Safety Report 5005623-7 (Version None)
Quarter: 2006Q2

REPORT INFORMATION
  Report Type: 
  Country: None (occurrence: None)
  Receive Date: 20060515
  Receipt Date: 20060504
  Transmission Date: 20061013
  Serious: Yes (Other)
  Sender: FDA-Public Use
  Company Number: 145632USA

PATIENT
  Sex: Female

DRUGS (1)
  1. MINOCYCLINE HCL [Suspect]
     Dates: start: 20040501, end: 20040601

REACTIONS (5)
  - DRUG DISPENSING ERROR [None]
  - HEADACHE [None]
  - NECK PAIN [None]
  - NERVOUS SYSTEM DISORDER [None]
  - PAIN [None]
